FAERS Safety Report 8096586-9 (Version None)
Quarter: 2012Q1

REPORT INFORMATION
  Report Type: 
  Country: None (occurrence: None)
  Receive Date: 20120129
  Receipt Date: 20111109
  Transmission Date: 20120608
  Serious: No
  Sender: FDA-Public Use
  Company Number: US-ABBOTT-11P-163-0872681-00

PATIENT
  Sex: Male
  Weight: 99.88 kg

DRUGS (9)
  1. HUMIRA [Suspect]
     Indication: PSORIASIS
     Dates: start: 20080101, end: 20110901
  2. FLONASE [Concomitant]
     Indication: SEASONAL ALLERGY
  3. SINGULAIR [Concomitant]
     Indication: SEASONAL ALLERGY
  4. PRILOSEC [Concomitant]
     Indication: GASTROOESOPHAGEAL REFLUX DISEASE
  5. VYTORIN [Concomitant]
     Indication: BLOOD CHOLESTEROL INCREASED
  6. UNKNOWN OINTMENT [Concomitant]
     Indication: PSORIASIS
  7. ATENOLOL [Concomitant]
     Indication: HEART RATE IRREGULAR
  8. ATIVAN [Concomitant]
     Indication: ANXIETY
  9. METHOTREXATE [Concomitant]
     Indication: PSORIASIS

REACTIONS (1)
  - PSORIASIS [None]
